FAERS Safety Report 18868554 (Version 1)
Quarter: 2021Q1

REPORT INFORMATION
  Report Type: Spontaneous
  Country: US (occurrence: US)
  Receive Date: 20210209
  Receipt Date: 20210209
  Transmission Date: 20210420
  Serious: No
  Sender: FDA-Public Use
  Company Number: US-PFIZER INC-2021098827

PATIENT
  Age: 60 Year
  Sex: Female

DRUGS (1)
  1. SOMAVERT [Suspect]
     Active Substance: PEGVISOMANT
     Dosage: 15 MG (15MG 6 DAYS A WEEK)
     Dates: start: 2008

REACTIONS (5)
  - Gastrointestinal disorder [Unknown]
  - Off label use [Unknown]
  - Pain [Unknown]
  - Peripheral swelling [Unknown]
  - Head titubation [Unknown]
